FAERS Safety Report 10872750 (Version 2)
Quarter: 2015Q2

REPORT INFORMATION
  Report Type: Spontaneous
  Country: US (occurrence: US)
  Receive Date: 20150227
  Receipt Date: 20150413
  Transmission Date: 20150821
  Serious: Yes (Other)
  Sender: FDA-Public Use
  Company Number: US-AMGEN-USASP2015017396

PATIENT
  Age: 62 Year
  Sex: Female

DRUGS (1)
  1. ENBREL [Suspect]
     Active Substance: ETANERCEPT
     Indication: RHEUMATOID ARTHRITIS
     Dosage: 50 MG, QWK
     Route: 065
     Dates: start: 20091201, end: 20150212

REACTIONS (11)
  - Bronchitis chronic [Unknown]
  - Sinus disorder [Not Recovered/Not Resolved]
  - International normalised ratio abnormal [Unknown]
  - Abdominal discomfort [Not Recovered/Not Resolved]
  - Pneumothorax [Unknown]
  - Pneumonia [Unknown]
  - Bronchiolitis [Recovered/Resolved]
  - Oral fungal infection [Not Recovered/Not Resolved]
  - Pyrexia [Recovered/Resolved]
  - Oropharyngeal pain [Not Recovered/Not Resolved]
  - Bronchitis viral [Not Recovered/Not Resolved]

NARRATIVE: CASE EVENT DATE: 201411
